FAERS Safety Report 9118369 (Version 1)
Quarter: 2013Q1

REPORT INFORMATION
  Report Type: Spontaneous
  Country: IT (occurrence: None)
  Receive Date: 20130128
  Receipt Date: 20130128
  Transmission Date: 20140127
  Serious: Yes (Other)
  Sender: FDA-Public Use
  Company Number: 2013AP000115

PATIENT
  Age: 52 Year
  Sex: Female

DRUGS (2)
  1. CLARITHROMYCIN [Suspect]
     Indication: ACUTE TONSILLITIS
     Route: 048
     Dates: start: 20121021, end: 20121027
  2. PANTOPRAZOLE (PANTOPRAZOLE) [Concomitant]

REACTIONS (3)
  - Cough [None]
  - Dyspepsia [None]
  - Vulvovaginal candidiasis [None]
